FAERS Safety Report 22115561 (Version 1)
Quarter: 2023Q1

REPORT INFORMATION
  Report Type: Other
  Country: DE (occurrence: DE)
  Receive Date: 20230320
  Receipt Date: 20230320
  Transmission Date: 20230417
  Serious: Yes (Hospitalization, Other)
  Sender: FDA-Public Use
  Company Number: None

PATIENT

DRUGS (2)
  1. RUXOLITINIB [Suspect]
     Active Substance: RUXOLITINIB
     Indication: Polycythaemia vera
     Dosage: 20 MG
     Route: 065
  2. RUXOLITINIB [Suspect]
     Active Substance: RUXOLITINIB
     Dosage: 5 MG
     Route: 065
     Dates: start: 2018

REACTIONS (12)
  - Carotid artery stenosis [Unknown]
  - Somnolence [Unknown]
  - Cytomegalovirus infection [Unknown]
  - Pyrexia [Unknown]
  - Hemiparesis [Unknown]
  - Haemorrhage [Unknown]
  - Vascular stent thrombosis [Unknown]
  - Gastric haemorrhage [Unknown]
  - Cerebrovascular accident [Unknown]
  - Circulatory collapse [Unknown]
  - Blood test abnormal [Unknown]
  - Chills [Unknown]

NARRATIVE: CASE EVENT DATE: 20230115
